FAERS Safety Report 5263105-1 (Version None)
Quarter: 2007Q1

REPORT INFORMATION
  Report Type: 
  Country: None (occurrence: None)
  Receive Date: 20070312
  Receipt Date: 20070228
  Transmission Date: 20070707
  Serious: Yes (Death)
  Sender: FDA-Public Use
  Company Number: PH-PFIZER INC-2007016025

PATIENT
  Age: 22 Month
  Sex: Female

DRUGS (1)
  1. ZITHROMAX [Suspect]
     Indication: UPPER RESPIRATORY TRACT INFECTION
     Route: 042
     Dates: start: 20070228, end: 20070228

REACTIONS (3)
  - CARDIAC ARREST [None]
  - DRUG ADMINISTRATION ERROR [None]
  - SHOCK [None]
